FAERS Safety Report 8779467 (Version 1)
Quarter: 2012Q4

REPORT INFORMATION
  Report Type: 
  Country: US (occurrence: US)
  Receive Date: 20120912
  Receipt Date: 20120912
  Transmission Date: 20130627
  Serious: Yes (Other)
  Sender: FDA-Public Use
  Company Number: US-AMGEN-USASP2012057362

PATIENT
  Age: 75 Year
  Sex: Female

DRUGS (1)
  1. ENBREL [Suspect]
     Indication: RHEUMATOID ARTHRITIS
     Dosage: 50 mg, qwk
     Route: 058
     Dates: start: 20120308, end: 20120906

REACTIONS (8)
  - Spinal column injury [Not Recovered/Not Resolved]
  - Head injury [Recovered/Resolved]
  - Fall [Recovered/Resolved]
  - Wound [Not Recovered/Not Resolved]
  - Dizziness [Recovered/Resolved]
  - Joint injury [Recovered/Resolved]
  - Excoriation [Recovered/Resolved]
  - Coccydynia [Not Recovered/Not Resolved]
